FAERS Safety Report 25642982 (Version 2)
Quarter: 2025Q4

REPORT INFORMATION
  Report Type: Report from Study
  Country: US (occurrence: US)
  Receive Date: 20250805
  Receipt Date: 20251014
  Transmission Date: 20260117
  Serious: No
  Sender: BIOGEN
  Company Number: US-BIOGEN-2025BI01319156

PATIENT
  Sex: Female

DRUGS (2)
  1. ZURZUVAE [Suspect]
     Active Substance: ZURANOLONE
     Indication: Perinatal depression
     Dosage: FOR 14 DAYS
     Route: 050
  2. WELLBUTRIN [Concomitant]
     Active Substance: BUPROPION HYDROCHLORIDE
     Indication: Depressed level of consciousness
     Route: 050

REACTIONS (8)
  - Mobility decreased [Unknown]
  - Initial insomnia [Unknown]
  - Cyanosis [Unknown]
  - Grip strength decreased [Unknown]
  - Diarrhoea [Unknown]
  - Tremor [Recovered/Resolved]
  - Somnolence [Unknown]
  - Lethargy [Unknown]
